FAERS Safety Report 25463479 (Version 1)
Quarter: 2025Q2

REPORT INFORMATION
  Report Type: Spontaneous
  Country: GB (occurrence: GB)
  Receive Date: 20250620
  Receipt Date: 20250620
  Transmission Date: 20250717
  Serious: Yes (Hospitalization, Other)
  Sender: ELI LILLY AND COMPANY
  Company Number: None

PATIENT
  Sex: Male

DRUGS (5)
  1. MOUNJARO [Suspect]
     Active Substance: TIRZEPATIDE
     Indication: Weight control
     Route: 065
  2. TADALAFIL [Concomitant]
     Active Substance: TADALAFIL
     Indication: Product used for unknown indication
  3. NITROFURANTOIN [Concomitant]
     Active Substance: NITROFURANTOIN
     Indication: Antibiotic prophylaxis
  4. SERTRALINE [Concomitant]
     Active Substance: SERTRALINE HYDROCHLORIDE
     Indication: Depression
  5. NEBIDO [Concomitant]
     Active Substance: TESTOSTERONE UNDECANOATE
     Indication: Product used for unknown indication

REACTIONS (1)
  - Gastritis [Recovering/Resolving]
